FAERS Safety Report 5077466-X (Version None)
Quarter: 2006Q3

REPORT INFORMATION
  Report Type: 
  Country: None (occurrence: None)
  Receive Date: 20060810
  Receipt Date: 20060307
  Transmission Date: 20061208
  Serious: No
  Sender: FDA-Public Use
  Company Number: US-GLAXOSMITHKLINE-A0596511A

PATIENT
  Sex: Female

DRUGS (2)
  1. PAROXETINE HCL [Suspect]
     Indication: POST-TRAUMATIC STRESS DISORDER
     Dosage: 40MG PER DAY
     Route: 048
     Dates: start: 20051001
  2. SYNTHROID [Concomitant]

REACTIONS (2)
  - INSOMNIA [None]
  - NIGHTMARE [None]
